FAERS Safety Report 4528334-0 (Version None)
Quarter: 2004Q4

REPORT INFORMATION
  Report Type: 
  Country: None (occurrence: None)
  Receive Date: 20041130
  Receipt Date: 20040810
  Transmission Date: 20050328
  Serious: No
  Sender: FDA-Public Use
  Company Number: WAES 0408USA01082

PATIENT
  Age: 86 Year
  Sex: Male

DRUGS (10)
  1. ZETIA [Suspect]
     Indication: HYPERLIPIDAEMIA
     Dosage: PO
     Route: 048
     Dates: start: 20040301
  2. CARDURA [Concomitant]
  3. METAMUCIL-2 [Concomitant]
  4. OCUVITE [Concomitant]
  5. OSTEO-BI-FLEX [Concomitant]
  6. PRINIVIL [Concomitant]
  7. ASPIRIN [Concomitant]
  8. ATENOLOL [Concomitant]
  9. INSULIN [Concomitant]
  10. VITAMINS (UNSPECIFIED) [Concomitant]

REACTIONS (1)
  - DRUG INEFFECTIVE [None]
